FAERS Safety Report 10968439 (Version 1)
Quarter: 2015Q1

REPORT INFORMATION
  Report Type: Spontaneous
  Country: FR (occurrence: FR)
  Receive Date: 20150330
  Receipt Date: 20150330
  Transmission Date: 20150721
  Serious: Yes (Life-Threatening, Hospitalization)
  Sender: FDA-Public Use
  Company Number: FR-ABBVIE-15P-056-1368777-00

PATIENT
  Age: 58 Year
  Sex: Male

DRUGS (8)
  1. DOMPERIDONE [Suspect]
     Active Substance: DOMPERIDONE
     Indication: SUICIDE ATTEMPT
     Route: 048
     Dates: start: 20150221, end: 20150221
  2. NAPROXEN. [Suspect]
     Active Substance: NAPROXEN
     Indication: SUICIDE ATTEMPT
     Route: 048
     Dates: start: 20150221, end: 20150221
  3. DEPAKOTE [Suspect]
     Active Substance: DIVALPROEX SODIUM
     Indication: SUICIDE ATTEMPT
     Route: 048
     Dates: start: 20150221, end: 20150221
  4. EFFEXOR [Concomitant]
     Active Substance: VENLAFAXINE HYDROCHLORIDE
     Indication: PRODUCT USED FOR UNKNOWN INDICATION
  5. LERCANIDIPINE [Suspect]
     Active Substance: LERCANIDIPINE
     Indication: SUICIDE ATTEMPT
     Route: 048
     Dates: start: 20150221, end: 20150221
  6. OLANZAPINE. [Suspect]
     Active Substance: OLANZAPINE
     Indication: SUICIDE ATTEMPT
     Route: 048
     Dates: start: 20150221, end: 20150221
  7. ENALAPRIL [Suspect]
     Active Substance: ENALAPRIL
     Indication: SUICIDE ATTEMPT
     Route: 048
     Dates: start: 20150221, end: 20150221
  8. PARACETAMOL [Suspect]
     Active Substance: ACETAMINOPHEN
     Indication: SUICIDE ATTEMPT
     Route: 048
     Dates: start: 20150221, end: 20150221

REACTIONS (3)
  - Electrocardiogram QT prolonged [Unknown]
  - Coma [Recovered/Resolved]
  - Hypertension [Recovered/Resolved]

NARRATIVE: CASE EVENT DATE: 20150222
